FAERS Safety Report 20986146 (Version 1)
Quarter: 2022Q2

REPORT INFORMATION
  Report Type: Report from Study
  Country: IT (occurrence: IT)
  Receive Date: 20220621
  Receipt Date: 20220621
  Transmission Date: 20220721
  Serious: Yes (Other)
  Sender: FDA-Public Use
  Company Number: IT-CELGENE-ITA-20201008176

PATIENT
  Age: 67 Year
  Sex: Female
  Weight: 70 kg

DRUGS (2)
  1. RITUXIMAB [Suspect]
     Active Substance: RITUXIMAB
     Indication: Lymphoma
     Dosage: CYCLE 1
     Route: 042
     Dates: start: 20161201, end: 20161223
  2. RITUXIMAB [Suspect]
     Active Substance: RITUXIMAB
     Dosage: FREQUENCY TEXT: ONCE?DURATION TEXT : CYCLE 5
     Route: 042
     Dates: start: 20170324, end: 20170324

REACTIONS (1)
  - Medullary thyroid cancer [Recovered/Resolved]

NARRATIVE: CASE EVENT DATE: 20201002
